FAERS Safety Report 9786099 (Version 1)
Quarter: 2013Q4

REPORT INFORMATION
  Report Type: Spontaneous
  Country: CH (occurrence: CH)
  Receive Date: 20131227
  Receipt Date: 20131227
  Transmission Date: 20140711
  Serious: Yes (Hospitalization)
  Sender: FDA-Public Use
  Company Number: CH-TEVA-452044ISR

PATIENT
  Age: 45 Year
  Sex: Male

DRUGS (6)
  1. SUMATRIPTAN [Suspect]
     Indication: HEADACHE
     Dosage: EVERY 3-4 HRS
     Route: 065
  2. SUMATRIPTAN [Suspect]
     Indication: MIGRAINE
     Dosage: 50MG AS NEEDED
     Route: 065
  3. VENLAFAXINE [Suspect]
     Indication: DEPRESSION
     Dosage: 75 MILLIGRAM DAILY;
     Route: 065
  4. CODEINE [Concomitant]
     Indication: PAIN MANAGEMENT
     Dosage: 30MG
     Route: 065
  5. PARACETAMOL [Concomitant]
     Indication: PAIN MANAGEMENT
     Dosage: 500MG
     Route: 065
  6. DIPYRONE [Concomitant]
     Indication: PAIN MANAGEMENT
     Dosage: 500MG
     Route: 065

REACTIONS (2)
  - Serotonin syndrome [Recovered/Resolved]
  - Accidental overdose [Recovered/Resolved]
